FAERS Safety Report 11982936 (Version 1)
Quarter: 2016Q1

REPORT INFORMATION
  Report Type: Spontaneous
  Country: US (occurrence: None)
  Receive Date: 20160129
  Receipt Date: 20160129
  Transmission Date: 20160526
  Serious: Yes (Disabling)
  Sender: FDA-Public Use
  Company Number: None

PATIENT
  Age: 39 Year
  Sex: Female
  Weight: 65.77 kg

DRUGS (1)
  1. MIRENA [Suspect]
     Active Substance: LEVONORGESTREL

REACTIONS (10)
  - Back pain [None]
  - Impaired work ability [None]
  - Headache [None]
  - Palpitations [None]
  - Anxiety [None]
  - Depression [None]
  - Pain [None]
  - Panic attack [None]
  - Neck pain [None]
  - Activities of daily living impaired [None]

NARRATIVE: CASE EVENT DATE: 20160126
